FAERS Safety Report 19056993 (Version 2)
Quarter: 2021Q1

REPORT INFORMATION
  Report Type: Report from Study
  Country: IT (occurrence: IT)
  Receive Date: 20210325
  Receipt Date: 20210330
  Transmission Date: 20210420
  Serious: Yes (Other)
  Sender: FDA-Public Use
  Company Number: IT-ASTRAZENECA-2021A178849

PATIENT
  Age: 23962 Day
  Sex: Male

DRUGS (2)
  1. DURVALUMAB. [Suspect]
     Active Substance: DURVALUMAB
     Dosage: ENDOVENOUS INFUSION EVERY 14 DAYS.
     Route: 042
     Dates: start: 20201221
  2. DELTACORTENE [Concomitant]
     Active Substance: PREDNISONE

REACTIONS (1)
  - Weight decreased [Recovering/Resolving]

NARRATIVE: CASE EVENT DATE: 20210103
